FAERS Safety Report 8543222 (Version 2)
Quarter: 2013Q1

REPORT INFORMATION
  Report Type: Spontaneous
  Country: US (occurrence: US)
  Receive Date: 20120502
  Receipt Date: 20130128
  Transmission Date: 20140127
  Serious: Yes (Hospitalization)
  Sender: FDA-Public Use
  Company Number: US-ELI_LILLY_AND_COMPANY-US201105001663

PATIENT
  Age: 78 None
  Sex: Female

DRUGS (22)
  1. FORTEO [Suspect]
     Indication: OSTEOPOROSIS
     Dosage: 20 UG, QD
     Route: 058
     Dates: start: 20110325
  2. FORTEO [Suspect]
     Dosage: 20 UG, QD
     Route: 058
     Dates: end: 201109
  3. FORTEO [Suspect]
     Dosage: 20 UG, QD
     Route: 058
  4. FORTEO [Suspect]
     Dosage: 20 UG, QD
     Route: 058
  5. FORTEO [Suspect]
     Dosage: 20 UG, QD
     Route: 058
  6. FORTEO [Suspect]
     Dosage: 20 UG, QD
     Route: 058
  7. HYDROCHLOROTHIAZIDE [Concomitant]
     Dosage: 12.5 MG, UNK
  8. CHOLESTYRAMINE [Concomitant]
     Dosage: 4 MG, UNK
  9. FLAGYL [Concomitant]
     Dosage: 250 MG, UNK
  10. VANCOMYCIN [Concomitant]
     Dosage: 1 MG, UNK
  11. VITAMINS [Concomitant]
     Dosage: UNK, QD
  12. OMEPRAZOLE [Concomitant]
     Dosage: UNK, QD
  13. TRAZODONE [Concomitant]
     Dosage: 100 MG, UNK
  14. TRAMADOL [Concomitant]
     Dosage: 50 MG, UNK
  15. VITAMIN B12 [Concomitant]
     Dosage: UNK, QD
  16. VITAMIN C [Concomitant]
     Dosage: UNK, QD
  17. VITAMIN D3 [Concomitant]
     Dosage: 200 IU, QD
  18. VITAMIN E [Concomitant]
     Dosage: UNK, QD
  19. CARDIZEM                           /00489701/ [Concomitant]
     Dosage: 180 MG, UNK
  20. FLORASTOR [Concomitant]
     Dosage: 250 MG, UNK
  21. CALCIUM [Concomitant]
     Dosage: UNK, QD
  22. FISH OIL [Concomitant]
     Dosage: UNK, QD

REACTIONS (17)
  - Clostridium difficile infection [Recovered/Resolved]
  - Clostridium difficile infection [Recovered/Resolved]
  - Cardiac disorder [Unknown]
  - Dizziness postural [Unknown]
  - Back pain [Not Recovered/Not Resolved]
  - Feeling jittery [Unknown]
  - Fatigue [Not Recovered/Not Resolved]
  - Dyspnoea [Not Recovered/Not Resolved]
  - Dizziness [Unknown]
  - Asthenia [Not Recovered/Not Resolved]
  - Nasopharyngitis [Unknown]
  - Asthenia [Not Recovered/Not Resolved]
  - Dysphonia [Not Recovered/Not Resolved]
  - Sluggishness [Not Recovered/Not Resolved]
  - Daydreaming [Not Recovered/Not Resolved]
  - Cataract [Unknown]
  - Fall [Unknown]
